FAERS Safety Report 8127910-6 (Version None)
Quarter: 2011Q4

REPORT INFORMATION
  Report Type: 
  Country: None (occurrence: None)
  Receive Date: 20111227
  Receipt Date: 20110929
  Transmission Date: 20120403
  Serious: No
  Sender: FDA-Public Use
  Company Number: PHEH2011US03581

PATIENT
  Age: 34 Year
  Sex: Female
  Weight: 85 kg

DRUGS (2)
  1. BACLOFEN [Concomitant]
  2. GILENYA [Suspect]
     Indication: MULTIPLE SCLEROSIS
     Dosage: 0.5 MG, QD, ORAL
     Route: 048
     Dates: start: 20110830, end: 20110928

REACTIONS (4)
  - FATIGUE [None]
  - FEELING COLD [None]
  - PALPITATIONS [None]
  - LYMPHOCYTE COUNT DECREASED [None]
